FAERS Safety Report 4477708-5 (Version None)
Quarter: 2004Q4

REPORT INFORMATION
  Report Type: 
  Country: None (occurrence: None)
  Receive Date: 20041014
  Receipt Date: 20040929
  Transmission Date: 20050328
  Serious: Yes (Other)
  Sender: FDA-Public Use
  Company Number: 2003-DE-05702GD

PATIENT
  Age: 31 Year
  Sex: Male

DRUGS (3)
  1. METHADONE HCL [Suspect]
     Dosage: 700 MG (NR), NR
  2. COTRIMOXAZOLE [Suspect]
  3. FOSCARNET [Suspect]

REACTIONS (4)
  - ELECTROCARDIOGRAM QT CORRECTED INTERVAL PROLONGED [None]
  - SINUS BRADYCARDIA [None]
  - SYNCOPE [None]
  - TORSADE DE POINTES [None]
